FAERS Safety Report 21388049 (Version 3)
Quarter: 2024Q3

REPORT INFORMATION
  Report Type: Spontaneous
  Country: US (occurrence: US)
  Receive Date: 20220928
  Receipt Date: 20240808
  Transmission Date: 20241017
  Serious: No
  Sender: SANOFI AVENTIS
  Company Number: US-SANOFI-01288209

PATIENT
  Age: 10 Day
  Sex: Female

DRUGS (6)
  1. LUMIZYME [Suspect]
     Active Substance: ALGLUCOSIDASE ALFA
     Indication: Glycogen storage disease type II
     Dosage: 40 MG/KG, QOW
     Route: 042
     Dates: start: 20220920
  2. LUMIZYME [Suspect]
     Active Substance: ALGLUCOSIDASE ALFA
     Dosage: 325 MG, QW
     Route: 042
     Dates: start: 202309
  3. EPINEPHRINE [Concomitant]
     Active Substance: EPINEPHRINE
  4. LIDOCAINE\PRILOCAINE [Concomitant]
     Active Substance: LIDOCAINE\PRILOCAINE
  5. HEPARIN [Concomitant]
     Active Substance: HEPARIN SODIUM
  6. SODIUM CHLORATE [Concomitant]
     Active Substance: SODIUM CHLORATE
     Dosage: 100 ML, BAG

REACTIONS (4)
  - Skin swelling [Unknown]
  - Erythema [Unknown]
  - Incorrect dose administered [Unknown]
  - Inappropriate schedule of product administration [Unknown]

NARRATIVE: CASE EVENT DATE: 20220920
